FAERS Safety Report 11111436 (Version 1)
Quarter: 2015Q2

REPORT INFORMATION
  Report Type: Report from Study
  Country: FR (occurrence: FR)
  Receive Date: 20150513
  Receipt Date: 20150513
  Transmission Date: 20150821
  Serious: Yes (Hospitalization)
  Sender: FDA-Public Use
  Company Number: PHHY2015FR053811

PATIENT
  Age: 69 Year
  Sex: Male
  Weight: 82 kg

DRUGS (14)
  1. NO TREATMENT RECEIVED [Suspect]
     Active Substance: UNSPECIFIED INGREDIENT
     Indication: RENAL TRANSPLANT
     Dosage: 100 MG (1-0-0) AND 75 MG (0-0-1)
     Route: 048
     Dates: start: 20051102
  2. NO TREATMENT RECEIVED [Suspect]
     Active Substance: UNSPECIFIED INGREDIENT
     Dosage: REDUCED DOSE
     Route: 048
     Dates: end: 20060121
  3. CELLCEPT [Suspect]
     Active Substance: MYCOPHENOLATE MOFETIL\MYCOPHENOLATE MOFETIL HYDROCHLORIDE
     Indication: RENAL TRANSPLANT
     Dosage: 1000 MG, BID (500 MG 2-0-2)
     Route: 048
     Dates: start: 20050726
  4. ROCALTROL [Concomitant]
     Active Substance: CALCITRIOL
     Indication: PRODUCT USED FOR UNKNOWN INDICATION
     Route: 065
  5. SANDIMMUNE [Suspect]
     Active Substance: CYCLOSPORINE
     Indication: RENAL TRANSPLANT
     Dosage: 175 MG, DAILY (100 MG MORNING, 75 MG NIGHT)
     Route: 048
     Dates: start: 20051102
  6. CALCIUM ^SANDOZ^ [Concomitant]
     Active Substance: CALCIUM
     Indication: PRODUCT USED FOR UNKNOWN INDICATION
     Route: 065
  7. CATAPRESAN//CLONIDINE [Concomitant]
     Indication: PRODUCT USED FOR UNKNOWN INDICATION
     Route: 065
  8. VENTOLIN [Concomitant]
     Active Substance: ALBUTEROL SULFATE
     Indication: PRODUCT USED FOR UNKNOWN INDICATION
     Route: 065
  9. SANDIMMUNE [Suspect]
     Active Substance: CYCLOSPORINE
     Dosage: UNK
     Route: 048
     Dates: end: 20060121
  10. RENITEN//ENALAPRIL MALEATE [Concomitant]
     Indication: PRODUCT USED FOR UNKNOWN INDICATION
     Route: 065
  11. ANDROLIN [Concomitant]
     Indication: PRODUCT USED FOR UNKNOWN INDICATION
     Route: 065
  12. THEOLAIR [Concomitant]
     Active Substance: THEOPHYLLINE ANHYDROUS
     Indication: PRODUCT USED FOR UNKNOWN INDICATION
     Dosage: UNK
     Route: 065
     Dates: end: 20060121
  13. HYGROTON [Concomitant]
     Active Substance: CHLORTHALIDONE
     Indication: PRODUCT USED FOR UNKNOWN INDICATION
     Route: 065
  14. OXIS TURBUHALER ^ASTRAZENECA^ [Concomitant]
     Indication: PRODUCT USED FOR UNKNOWN INDICATION
     Route: 065

REACTIONS (21)
  - Pharyngitis [Unknown]
  - Hyperkalaemia [Unknown]
  - Skin atrophy [Unknown]
  - Tachycardia [Unknown]
  - Dizziness [Unknown]
  - Joint swelling [Recovered/Resolved]
  - Nasopharyngitis [Unknown]
  - Erythema [Recovered/Resolved]
  - Weight decreased [Unknown]
  - Immunosuppressant drug level increased [Unknown]
  - Atrial flutter [Unknown]
  - Pneumonia [Recovered/Resolved]
  - Presyncope [Unknown]
  - Diastolic dysfunction [Unknown]
  - Pyrexia [Recovered/Resolved]
  - Blood creatinine increased [Recovered/Resolved]
  - Atrial fibrillation [Unknown]
  - Hypertensive cardiomyopathy [Unknown]
  - Gout [Recovered/Resolved]
  - General physical health deterioration [Recovered/Resolved]
  - Productive cough [Unknown]

NARRATIVE: CASE EVENT DATE: 200601
